FAERS Safety Report 5228598-4 (Version None)
Quarter: 2007Q1

REPORT INFORMATION
  Report Type: 
  Country: None (occurrence: None)
  Receive Date: 20070205
  Receipt Date: 20070126
  Transmission Date: 20070707
  Serious: Yes (Other)
  Sender: FDA-Public Use
  Company Number: US-JNJFOC-20070107158

PATIENT
  Sex: Female
  Weight: 60.33 kg

DRUGS (4)
  1. REMICADE [Suspect]
     Route: 042
  2. REMICADE [Suspect]
     Indication: RHEUMATOID ARTHRITIS
     Route: 042
  3. OXYCONTIN [Concomitant]
  4. PREDNISONE [Concomitant]

REACTIONS (1)
  - B-CELL LYMPHOMA [None]
